FAERS Safety Report 18489822 (Version 1)
Quarter: 2020Q4

REPORT INFORMATION
  Report Type: Spontaneous
  Country: US (occurrence: US)
  Receive Date: 20201110
  Receipt Date: 20201110
  Transmission Date: 20210114
  Serious: Yes (Hospitalization)
  Sender: FDA-Public Use
  Company Number: None

PATIENT
  Age: 64 Year
  Sex: Female
  Weight: 49.44 kg

DRUGS (12)
  1. ALBUTEROL. [Suspect]
     Active Substance: ALBUTEROL
  2. SELENIUM. [Concomitant]
     Active Substance: SELENIUM
  3. MULTIVITAMINS [Concomitant]
     Active Substance: VITAMINS
  4. CHOLESTYRAMINE POWDER [Suspect]
     Active Substance: CHOLESTYRAMINE
     Route: 048
     Dates: end: 201905
  5. SINGULAIR [Suspect]
     Active Substance: MONTELUKAST SODIUM
  6. CALCIUM [Concomitant]
     Active Substance: CALCIUM
  7. DEXILANT [Suspect]
     Active Substance: DEXLANSOPRAZOLE
  8. MG [Concomitant]
     Active Substance: MAGNESIUM
  9. VIT D [Concomitant]
     Active Substance: VITAMIN D NOS
  10. ADVAIR HFA [Suspect]
     Active Substance: FLUTICASONE PROPIONATE\SALMETEROL XINAFOATE
  11. ZINC. [Concomitant]
     Active Substance: ZINC
  12. L-TYROSINE [Concomitant]
     Active Substance: TYROSINE

REACTIONS (4)
  - Feeding disorder [None]
  - Scar [None]
  - Weight decreased [None]
  - Pain [None]

NARRATIVE: CASE EVENT DATE: 20190520
